FAERS Safety Report 23547751 (Version 1)
Quarter: 2024Q1

REPORT INFORMATION
  Report Type: Report from Study
  Country: CA (occurrence: CA)
  Receive Date: 20240221
  Receipt Date: 20240221
  Transmission Date: 20240409
  Serious: Yes (Other)
  Sender: FDA-Public Use
  Company Number: CA-JNJFOC-20231042497

PATIENT
  Age: 7 Decade
  Sex: Female
  Weight: 69 kg

DRUGS (3)
  1. REMICADE [Suspect]
     Active Substance: INFLIXIMAB
     Indication: Crohn^s disease
     Route: 041
     Dates: start: 20230821
  2. REMICADE [Suspect]
     Active Substance: INFLIXIMAB
     Route: 041
  3. PAXLOVID [Concomitant]
     Active Substance: NIRMATRELVIR\RITONAVIR

REACTIONS (2)
  - Lupus-like syndrome [Recovering/Resolving]
  - COVID-19 [Unknown]
